FAERS Safety Report 5800183-2 (Version None)
Quarter: 2008Q3

REPORT INFORMATION
  Report Type: 
  Country: None (occurrence: None)
  Receive Date: 20080703
  Receipt Date: 20080701
  Transmission Date: 20090109
  Serious: Yes (Hospitalization)
  Sender: FDA-Public Use
  Company Number: A0735040A

PATIENT
  Age: 48 Year
  Sex: Female

DRUGS (5)
  1. ALLI [Suspect]
     Indication: DRUG USE FOR UNKNOWN INDICATION
     Route: 048
     Dates: start: 20080301
  2. MULTI-VITAMIN [Concomitant]
  3. L-GLUTAMINE [Concomitant]
  4. L-TYROSINE [Concomitant]
  5. VITAMIN B-12 [Concomitant]

REACTIONS (5)
  - ANOREXIA [None]
  - GROIN PAIN [None]
  - HUNGER [None]
  - MYOCARDIAL INFARCTION [None]
  - RECTAL DISCHARGE [None]
